FAERS Safety Report 9655451 (Version 2)
Quarter: 2013Q4

REPORT INFORMATION
  Report Type: Spontaneous
  Country: US (occurrence: US)
  Receive Date: 20131029
  Receipt Date: 20131029
  Transmission Date: 20140711
  Serious: Yes (Other)
  Sender: FDA-Public Use
  Company Number: US-NAPPMUNDI-USA-2012-0086802

PATIENT
  Age: 61 Year
  Sex: Female
  Weight: 118.82 kg

DRUGS (2)
  1. OXYCONTIN (NDA 22-272) [Suspect]
     Indication: PAIN
     Dosage: 40 MG, TID
     Route: 048
  2. NORCO [Suspect]
     Indication: BREAKTHROUGH PAIN

REACTIONS (2)
  - Drug abuse [Unknown]
  - Drug effect decreased [Unknown]
